FAERS Safety Report 10650045 (Version 1)
Quarter: 2014Q4

REPORT INFORMATION
  Report Type: Spontaneous
  Country: FR (occurrence: FR)
  Receive Date: 20141212
  Receipt Date: 20141212
  Transmission Date: 20150529
  Serious: Yes (Hospitalization)
  Sender: FDA-Public Use
  Company Number: FR-ASTRAZENECA-2014SE94039

PATIENT
  Age: 77 Year
  Sex: Female

DRUGS (8)
  1. AMOXICILLIN. [Suspect]
     Active Substance: AMOXICILLIN
     Route: 048
     Dates: start: 201407, end: 201407
  2. AMLOR [Suspect]
     Active Substance: AMLODIPINE BESYLATE
     Route: 048
     Dates: end: 20140703
  3. PREVISCAN [Suspect]
     Active Substance: FLUINDIONE
     Dosage: OVERDOSE
     Route: 048
     Dates: start: 20140702
  4. PREVISCAN [Suspect]
     Active Substance: FLUINDIONE
     Route: 048
     Dates: start: 20140705
  5. CORGARD [Suspect]
     Active Substance: NADOLOL
     Route: 048
     Dates: end: 20140703
  6. HYTACAND [Suspect]
     Active Substance: CANDESARTAN CILEXETIL\HYDROCHLOROTHIAZIDE
     Dosage: 16 MG/12.5 MG, 1 DF DAILY
     Route: 048
     Dates: end: 20140703
  7. PREVISCAN [Suspect]
     Active Substance: FLUINDIONE
     Route: 048
     Dates: end: 20140703
  8. PREVISCAN [Suspect]
     Active Substance: FLUINDIONE
     Route: 048
     Dates: start: 20140710

REACTIONS (4)
  - Haematoma [Recovered/Resolved]
  - Hyponatraemia [Recovered/Resolved]
  - International normalised ratio increased [Recovered/Resolved]
  - Hypokalaemia [Recovered/Resolved]

NARRATIVE: CASE EVENT DATE: 20140702
